FAERS Safety Report 17666721 (Version 3)
Quarter: 2021Q1

REPORT INFORMATION
  Report Type: Report from Study
  Country: US (occurrence: US)
  Receive Date: 20200414
  Receipt Date: 20210227
  Transmission Date: 20210419
  Serious: No
  Sender: FDA-Public Use
  Company Number: NVSC2020US098602

PATIENT
  Sex: Female

DRUGS (1)
  1. GLEEVEC [Suspect]
     Active Substance: IMATINIB MESYLATE
     Indication: PRODUCT USED FOR UNKNOWN INDICATION
     Dosage: UNK
     Route: 065

REACTIONS (8)
  - Dyspnoea [Unknown]
  - Muscle strain [Unknown]
  - Nausea [Unknown]
  - Product dose omission issue [Unknown]
  - Fluid retention [Unknown]
  - Malaise [Unknown]
  - Feeling abnormal [Unknown]
  - Hypersensitivity [Unknown]
